FAERS Safety Report 7277808-0 (Version None)
Quarter: 2011Q1

REPORT INFORMATION
  Report Type: 
  Country: None (occurrence: None)
  Receive Date: 20110207
  Receipt Date: 20110127
  Transmission Date: 20110831
  Serious: Yes (Life-Threatening, Hospitalization, Other)
  Sender: FDA-Public Use
  Company Number: JP-JNJFOC-20101106903

PATIENT
  Sex: Female
  Weight: 44 kg

DRUGS (13)
  1. REMICADE [Suspect]
     Indication: RHEUMATOID ARTHRITIS
     Route: 042
  2. REMICADE [Suspect]
     Dosage: 1 INFUSION
     Route: 042
  3. EPENARD [Concomitant]
     Route: 048
  4. RHEUMATREX [Concomitant]
     Indication: RHEUMATOID ARTHRITIS
  5. FOLIAMIN [Concomitant]
     Route: 048
  6. HYALEIN [Concomitant]
  7. REMICADE [Suspect]
     Dosage: 19TH INFUSION
     Route: 042
  8. ASPARA-CA [Concomitant]
     Route: 048
  9. CINAL [Concomitant]
     Route: 048
  10. SELBEX [Concomitant]
     Route: 048
  11. MECOBAMIDE [Concomitant]
     Dosage: DOSE 500 RG 3 TIMES DAILY
     Route: 048
  12. D-ALFA [Concomitant]
     Dosage: DOSE 1 RG DAILY
     Route: 048
  13. ASPIRIN [Concomitant]
     Route: 048

REACTIONS (3)
  - SHOCK [None]
  - DISSEMINATED TUBERCULOSIS [None]
  - PYREXIA [None]
